FAERS Safety Report 14742441 (Version 1)
Quarter: 2018Q2

REPORT INFORMATION
  Report Type: Spontaneous
  Country: US (occurrence: US)
  Receive Date: 20180410
  Receipt Date: 20180410
  Transmission Date: 20180711
  Serious: Yes (Hospitalization)
  Sender: FDA-Public Use
  Company Number: US-PFIZER INC-2018141772

PATIENT
  Age: 57 Year
  Sex: Male

DRUGS (4)
  1. REVATIO [Suspect]
     Active Substance: SILDENAFIL CITRATE
     Indication: CARDIAC DISORDER
  2. SILDENAFIL CITRATE. [Suspect]
     Active Substance: SILDENAFIL CITRATE
     Indication: CARDIAC DISORDER
  3. REVATIO [Suspect]
     Active Substance: SILDENAFIL CITRATE
     Indication: PULMONARY FUNCTION TEST ABNORMAL
     Dosage: 20 MG, 3X/DAY(20MG 1 TABLET BY MOUTH 3 TIMES A DAY)
     Route: 048
     Dates: end: 2017
  4. SILDENAFIL CITRATE. [Suspect]
     Active Substance: SILDENAFIL CITRATE
     Indication: PULMONARY FUNCTION TEST ABNORMAL
     Dosage: 20 MG, 2X/DAY(20MG 1 TABLET BY MOUTH TWICE A DAY)
     Route: 048
     Dates: start: 2017

REACTIONS (1)
  - Chronic obstructive pulmonary disease [Not Recovered/Not Resolved]
